FAERS Safety Report 20867081 (Version 2)
Quarter: 2022Q2

REPORT INFORMATION
  Report Type: Spontaneous
  Country: JP (occurrence: JP)
  Receive Date: 20220524
  Receipt Date: 20220602
  Transmission Date: 20220721
  Serious: Yes (Hospitalization, Other)
  Sender: FDA-Public Use
  Company Number: JP-MSD-M2021-20367

PATIENT
  Age: 80 Year
  Sex: Female

DRUGS (1)
  1. KEYTRUDA [Suspect]
     Active Substance: PEMBROLIZUMAB
     Indication: Lip and/or oral cavity cancer stage IV
     Dosage: 200 MILLIGRAM, Q3W
     Route: 041

REACTIONS (6)
  - Adrenocorticotropic hormone deficiency [Recovering/Resolving]
  - Fulminant type 1 diabetes mellitus [Recovering/Resolving]
  - Immune-mediated adrenal insufficiency [Recovering/Resolving]
  - Productive cough [Unknown]
  - Pyrexia [Unknown]
  - Cough [Unknown]

NARRATIVE: CASE EVENT DATE: 20210101
